FAERS Safety Report 7420892-1 (Version None)
Quarter: 2011Q2

REPORT INFORMATION
  Report Type: 
  Country: None (occurrence: None)
  Receive Date: 20110418
  Receipt Date: 20110411
  Transmission Date: 20111010
  Serious: Yes (Other)
  Sender: FDA-Public Use
  Company Number: A0922453A

PATIENT
  Age: 84 Year
  Sex: Male
  Weight: 72.7 kg

DRUGS (3)
  1. LOVAZA [Suspect]
     Dosage: 4G UNKNOWN
     Route: 048
  2. MULTIPLE MEDICATION [Concomitant]
  3. PLAVIX [Suspect]

REACTIONS (2)
  - SKIN HAEMORRHAGE [None]
  - GASTROINTESTINAL HAEMORRHAGE [None]
